FAERS Safety Report 7248858-5 (Version None)
Quarter: 2011Q1

REPORT INFORMATION
  Report Type: 
  Country: None (occurrence: None)
  Receive Date: 20110121
  Receipt Date: 20110121
  Transmission Date: 20110831
  Serious: Yes (Hospitalization)
  Sender: FDA-Public Use
  Company Number: None

PATIENT
  Sex: Male
  Weight: 16.6 kg

DRUGS (4)
  1. VINCRISTINE SULFATE [Suspect]
     Dosage: 1 MG
  2. MERCAPTOPURINE [Suspect]
     Dosage: 350 MG
  3. METHOTREXATE [Suspect]
     Dosage: 12 MG
  4. DEXAMETHASONE [Suspect]
     Dosage: 17.5 MG

REACTIONS (14)
  - PYREXIA [None]
  - NAUSEA [None]
  - NEUTROPENIA [None]
  - ACUTE RESPIRATORY DISTRESS SYNDROME [None]
  - ABDOMINAL PAIN [None]
  - USE OF ACCESSORY RESPIRATORY MUSCLES [None]
  - HYPOXIA [None]
  - PULMONARY OEDEMA [None]
  - TACHYPNOEA [None]
  - EAR INFECTION [None]
  - RHINORRHOEA [None]
  - CONTUSION [None]
  - THROMBOCYTOPENIA [None]
  - RESPIRATORY SYNCYTIAL VIRUS TEST POSITIVE [None]
